FAERS Safety Report 23508455 (Version 1)
Quarter: 2024Q1

REPORT INFORMATION
  Report Type: Spontaneous
  Country: FR (occurrence: FR)
  Receive Date: 20240209
  Receipt Date: 20240209
  Transmission Date: 20240410
  Serious: Yes (Other)
  Sender: FDA-Public Use
  Company Number: None

PATIENT
  Age: 96 Year
  Sex: Male
  Weight: 70 kg

DRUGS (17)
  1. LEVOFLOXACIN [Suspect]
     Active Substance: LEVOFLOXACIN
     Indication: Prosthetic valve endocarditis
     Route: 042
     Dates: start: 20231219, end: 20231227
  2. CEFAZOLIN SODIUM [Suspect]
     Active Substance: CEFAZOLIN SODIUM
     Indication: Prosthetic valve endocarditis
     Route: 042
     Dates: start: 20231212, end: 20231212
  3. CEFAZOLIN SODIUM [Suspect]
     Active Substance: CEFAZOLIN SODIUM
     Route: 042
     Dates: start: 20231227
  4. CEFAZOLIN SODIUM [Suspect]
     Active Substance: CEFAZOLIN SODIUM
     Route: 042
     Dates: start: 20231212, end: 20231227
  5. SKENAN [Suspect]
     Active Substance: MORPHINE SULFATE
     Indication: Pain
     Route: 048
     Dates: start: 20231222
  6. MORPHINE SULFATE [Suspect]
     Active Substance: MORPHINE SULFATE
     Indication: Pain
     Route: 048
     Dates: start: 20231222
  7. LACTULOSE [Concomitant]
     Active Substance: LACTULOSE
     Indication: Product used for unknown indication
     Route: 048
  8. LERCANIDIPINE HYDROCHLORIDE [Concomitant]
     Active Substance: LERCANIDIPINE HYDROCHLORIDE
     Indication: Product used for unknown indication
     Route: 048
  9. AMIODARONE [Concomitant]
     Active Substance: AMIODARONE
     Indication: Product used for unknown indication
     Route: 048
  10. FUROSEMIDE [Concomitant]
     Active Substance: FUROSEMIDE
     Indication: Product used for unknown indication
     Route: 048
     Dates: start: 20231219, end: 20231222
  11. FUROSEMIDE [Concomitant]
     Active Substance: FUROSEMIDE
     Route: 048
     Dates: start: 20231214, end: 20231219
  12. FUROSEMIDE [Concomitant]
     Active Substance: FUROSEMIDE
     Route: 048
     Dates: start: 20231222, end: 20231227
  13. FUROSEMIDE [Concomitant]
     Active Substance: FUROSEMIDE
     Route: 048
     Dates: end: 20231214
  14. ELIQUIS 2.5 mg, film-coated tablet [Concomitant]
     Indication: Product used for unknown indication
     Route: 048
     Dates: end: 20231227
  15. LANSOPRAZOLE [Concomitant]
     Active Substance: LANSOPRAZOLE
     Indication: Product used for unknown indication
     Route: 048
  16. TINZAPARIN SODIUM ((MAMMAL/PIG/INTESTINAL MUCOSA)) [Concomitant]
     Indication: Product used for unknown indication
     Route: 058
     Dates: start: 20231227
  17. OXAZEPAM [Concomitant]
     Active Substance: OXAZEPAM
     Indication: Product used for unknown indication
     Route: 048
     Dates: start: 20231226, end: 20240109

REACTIONS (2)
  - Disorientation [Not Recovered/Not Resolved]
  - Myoclonus [Recovered/Resolved]

NARRATIVE: CASE EVENT DATE: 20231227
